FAERS Safety Report 17759990 (Version 2)
Quarter: 2020Q2

REPORT INFORMATION
  Report Type: Spontaneous
  Country: US (occurrence: US)
  Receive Date: 20200508
  Receipt Date: 20200514
  Transmission Date: 20200714
  Serious: Yes (Other)
  Sender: FDA-Public Use
  Company Number: US-ASTRAZENECA-2018SF65944

PATIENT
  Age: 15576 Day
  Sex: Male
  Weight: 109.8 kg

DRUGS (35)
  1. DEXILANT [Suspect]
     Active Substance: DEXLANSOPRAZOLE
     Route: 065
     Dates: start: 2013
  2. DEXILANT [Suspect]
     Active Substance: DEXLANSOPRAZOLE
     Route: 048
  3. SEROQUEL [Concomitant]
     Active Substance: QUETIAPINE FUMARATE
  4. KLONOPIN [Concomitant]
     Active Substance: CLONAZEPAM
  5. LEVOTHYROXINE. [Concomitant]
     Active Substance: LEVOTHYROXINE
  6. ASPIRIN. [Concomitant]
     Active Substance: ASPIRIN
     Dates: start: 20130910
  7. AMITIZA [Concomitant]
     Active Substance: LUBIPROSTONE
     Dates: start: 20130910
  8. PRILOSEC OTC [Suspect]
     Active Substance: OMEPRAZOLE MAGNESIUM
     Route: 048
     Dates: start: 20080626
  9. SPIRONOLACTON [Concomitant]
     Active Substance: SPIRONOLACTONE
  10. BACLOFEN. [Concomitant]
     Active Substance: BACLOFEN
     Dates: start: 20080626
  11. SONATA [Concomitant]
     Active Substance: ZALEPLON
  12. TORSEMIDE. [Concomitant]
     Active Substance: TORSEMIDE
     Dates: start: 20130910
  13. NEXIUM [Suspect]
     Active Substance: ESOMEPRAZOLE MAGNESIUM
     Route: 048
     Dates: start: 20060711, end: 20080626
  14. BOTOX [Concomitant]
     Active Substance: ONABOTULINUMTOXINA
  15. GABAPENTIN. [Concomitant]
     Active Substance: GABAPENTIN
  16. ZEGERID [Concomitant]
     Active Substance: OMEPRAZOLE\SODIUM BICARBONATE
     Dates: start: 20060907, end: 20080626
  17. ANUSOL NOS [Concomitant]
     Active Substance: BALSAM PERU\BENZYL BENZOATE\BISMUTH HYDROXIDE\BISMUTH SUBGALLATE\HYDROCORTISONE ACETATE\ZINC OXIDE
     Dates: start: 20131011
  18. NEXIUM [Suspect]
     Active Substance: ESOMEPRAZOLE MAGNESIUM
     Route: 048
     Dates: start: 2006
  19. DEXILANT [Suspect]
     Active Substance: DEXLANSOPRAZOLE
     Route: 065
     Dates: start: 2013
  20. PROPANOLOL [Concomitant]
     Active Substance: PROPRANOLOL HYDROCHLORIDE
     Dates: start: 20080626
  21. TAMSULOSIN [Concomitant]
     Active Substance: TAMSULOSIN
  22. DEXILANT [Suspect]
     Active Substance: DEXLANSOPRAZOLE
     Route: 048
     Dates: start: 20130910
  23. CARAFATE [Concomitant]
     Active Substance: SUCRALFATE
     Dates: start: 20101216
  24. TRILEPTAL [Concomitant]
     Active Substance: OXCARBAZEPINE
     Dates: start: 20080626
  25. IMITREX [Concomitant]
     Active Substance: SUMATRIPTAN SUCCINATE
     Dates: start: 20130910
  26. NICOTINE. [Concomitant]
     Active Substance: NICOTINE
     Dates: start: 20101221
  27. LAMICTAL [Concomitant]
     Active Substance: LAMOTRIGINE
     Dates: start: 20080626
  28. NEXIUM [Suspect]
     Active Substance: ESOMEPRAZOLE MAGNESIUM
     Route: 048
     Dates: start: 20101216
  29. PRILOSEC OTC [Suspect]
     Active Substance: OMEPRAZOLE MAGNESIUM
     Route: 048
     Dates: start: 2008
  30. PROMETHAZINE [Concomitant]
     Active Substance: PROMETHAZINE HYDROCHLORIDE
  31. ABILIFY [Concomitant]
     Active Substance: ARIPIPRAZOLE
     Dates: start: 20080626
  32. RELPAX [Concomitant]
     Active Substance: ELETRIPTAN HYDROBROMIDE
  33. HYDROCODONE [Concomitant]
     Active Substance: HYDROCODONE
     Dates: start: 20110128
  34. CELEBREX [Concomitant]
     Active Substance: CELECOXIB
     Dates: start: 20080626
  35. FOLIC ACID. [Concomitant]
     Active Substance: FOLIC ACID

REACTIONS (5)
  - Renal failure [Unknown]
  - Rebound acid hypersecretion [Unknown]
  - Tubulointerstitial nephritis [Unknown]
  - Chronic kidney disease [Unknown]
  - Acute kidney injury [Unknown]

NARRATIVE: CASE EVENT DATE: 20140916
